FAERS Safety Report 20961506 (Version 1)
Quarter: 2022Q2

REPORT INFORMATION
  Report Type: Spontaneous
  Country: US (occurrence: None)
  Receive Date: 20220615
  Receipt Date: 20220615
  Transmission Date: 20220721
  Serious: Yes (Hospitalization, Other)
  Sender: FDA-Public Use
  Company Number: 2022A214255

PATIENT
  Age: 83 Year
  Sex: Female
  Weight: 108.9 kg

DRUGS (2)
  1. BYDUREON BCISE [Suspect]
     Active Substance: EXENATIDE
     Indication: Blood glucose fluctuation
     Route: 058
     Dates: start: 202203
  2. BYDUREON [Suspect]
     Active Substance: EXENATIDE
     Indication: Blood glucose fluctuation
     Route: 058
     Dates: end: 202203

REACTIONS (7)
  - Ankle fracture [Recovering/Resolving]
  - Neoplasm malignant [Recovered/Resolved]
  - Blood glucose increased [Recovered/Resolved]
  - Fall [Recovering/Resolving]
  - Mental status changes [Not Recovered/Not Resolved]
  - Intentional device misuse [Unknown]
  - Incorrect dose administered by device [Unknown]

NARRATIVE: CASE EVENT DATE: 20220101
